FAERS Safety Report 5269971-8 (Version None)
Quarter: 2007Q1

REPORT INFORMATION
  Report Type: 
  Country: None (occurrence: None)
  Receive Date: 20061213
  Receipt Date: 20030811
  Transmission Date: 20070707
  Serious: Yes (Other)
  Sender: FDA-Public Use
  Company Number: 2003UW10099

PATIENT
  Age: 71 Year
  Sex: Female

DRUGS (2)
  1. IRESSA [Suspect]
     Indication: NON-SMALL CELL LUNG CANCER
  2. PRILOSEC [Suspect]
     Indication: SCLERODERMA

REACTIONS (3)
  - DRUG INTERACTION [None]
  - NAUSEA [None]
  - VOMITING [None]
